FAERS Safety Report 16893383 (Version 1)
Quarter: 2019Q4

REPORT INFORMATION
  Report Type: Spontaneous
  Country: US (occurrence: US)
  Receive Date: 20191008
  Receipt Date: 20191008
  Transmission Date: 20200122
  Serious: Yes (Hospitalization)
  Sender: FDA-Public Use
  Company Number: US-GW PHARMA-201910USGW3575

PATIENT

DRUGS (3)
  1. BACLOFEN. [Concomitant]
     Active Substance: BACLOFEN
     Indication: PRODUCT USED FOR UNKNOWN INDICATION
     Dosage: UNK
     Route: 065
  2. SABRIL [Concomitant]
     Active Substance: VIGABATRIN
     Indication: PRODUCT USED FOR UNKNOWN INDICATION
     Dosage: UNK
     Route: 065
  3. EPIDIOLEX [Suspect]
     Active Substance: CANNABIDIOL
     Indication: LENNOX-GASTAUT SYNDROME
     Dosage: 70 MILLIGRAM, TID
     Route: 048
     Dates: start: 2019

REACTIONS (6)
  - Respiratory distress [Unknown]
  - Aspiration [Unknown]
  - Muscle spasticity [Unknown]
  - Talipes correction [Unknown]
  - Seizure [Unknown]
  - Vomiting [Unknown]

NARRATIVE: CASE EVENT DATE: 2019
